FAERS Safety Report 14345379 (Version 2)
Quarter: 2018Q1

REPORT INFORMATION
  Report Type: Report from Study
  Country: DE (occurrence: DE)
  Receive Date: 20180103
  Receipt Date: 20180109
  Transmission Date: 20180509
  Serious: Yes (Hospitalization)
  Sender: FDA-Public Use
  Company Number: DE-ROCHE-2048966

PATIENT
  Age: 58 Year
  Sex: Male
  Weight: 101 kg

DRUGS (6)
  1. ATEZOLIZUMAB. [Suspect]
     Active Substance: ATEZOLIZUMAB
     Indication: BLADDER TRANSITIONAL CELL CARCINOMA
     Dosage: DOSE AS PER PROTOCOL: ATEZOLIZUMAB WILL BE ADMINISTERED INTRAVENOUSLY AT A FIXED DOSE OF 1200 MG ON
     Route: 042
     Dates: start: 20150708, end: 20171229
  2. BICA NORM [Concomitant]
     Route: 048
     Dates: start: 20130620
  3. MOXIFLOXACIN. [Concomitant]
     Active Substance: MOXIFLOXACIN
     Indication: PROPHYLAXIS
     Route: 048
     Dates: start: 20171227
  4. ACC [Concomitant]
     Active Substance: ACETYLCYSTEINE
     Route: 048
     Dates: start: 20150620
  5. BISOPROLOL [Concomitant]
     Active Substance: BISOPROLOL
     Indication: HYPERTENSION
     Route: 048
     Dates: start: 20160427
  6. UREA, CREAM [Concomitant]
     Indication: PALMAR-PLANTAR ERYTHRODYSAESTHESIA SYNDROME
     Route: 062
     Dates: start: 20160810

REACTIONS (1)
  - Muscle haemorrhage [Not Recovered/Not Resolved]

NARRATIVE: CASE EVENT DATE: 20171218
